FAERS Safety Report 15405192 (Version 2)
Quarter: 2018Q4

REPORT INFORMATION
  Report Type: Report from Study
  Country: US (occurrence: US)
  Receive Date: 20180920
  Receipt Date: 20181012
  Transmission Date: 20190204
  Serious: Yes (Hospitalization)
  Sender: FDA-Public Use
  Company Number: US-ROCHE-2185819

PATIENT
  Age: 52 Year
  Sex: Male
  Weight: 85.9 kg

DRUGS (7)
  1. ENOXAPARIN [Concomitant]
     Active Substance: ENOXAPARIN
     Route: 058
  2. ALLOPURINOL. [Concomitant]
     Active Substance: ALLOPURINOL
     Route: 048
     Dates: start: 20180905, end: 20181005
  3. ULTRAM [Concomitant]
     Active Substance: TRAMADOL HYDROCHLORIDE
     Indication: PAIN
     Route: 048
     Dates: start: 20180718
  4. OBINUTUZUMAB. [Suspect]
     Active Substance: OBINUTUZUMAB
     Indication: B-CELL LYMPHOMA
     Route: 042
     Dates: start: 20170123, end: 20180718
  5. LENALIDOMIDE [Suspect]
     Active Substance: LENALIDOMIDE
     Indication: B-CELL LYMPHOMA
     Route: 048
     Dates: start: 20170123, end: 20180612
  6. NAPROSYN [Concomitant]
     Active Substance: NAPROXEN
     Route: 048
     Dates: start: 20180914, end: 20180921
  7. VANCOMYCIN [Concomitant]
     Active Substance: VANCOMYCIN
     Route: 042

REACTIONS (1)
  - Arthritis [Unknown]

NARRATIVE: CASE EVENT DATE: 20180612
